FAERS Safety Report 7169059-5 (Version None)
Quarter: 2010Q4

REPORT INFORMATION
  Report Type: 
  Country: None (occurrence: None)
  Receive Date: 20101216
  Receipt Date: 20100115
  Transmission Date: 20110411
  Serious: No
  Sender: FDA-Public Use
  Company Number: US-AMGEN-KDL386079

PATIENT

DRUGS (13)
  1. ENBREL [Suspect]
     Indication: PRODUCT USED FOR UNKNOWN INDICATION
     Dosage: 50 MG, QWK
     Route: 058
  2. MINOCYCLINE HCL [Concomitant]
     Dosage: 100 MG, UNK
     Route: 048
  3. HYDROXYCHLOROQUINE SULFATE [Concomitant]
     Dosage: 200 MG, UNK
     Route: 048
  4. PREDNISONE [Concomitant]
     Dosage: 10 MG, UNK
     Route: 048
  5. VALSARTAN/HYDROCHLOROTHIAZIDE [Concomitant]
     Dosage: 12.5 MG, UNK
     Route: 048
  6. ETODOLAC [Concomitant]
     Dosage: 400 MG, UNK
     Route: 048
  7. FOLIC ACID [Concomitant]
     Dosage: 1 MG, UNK
     Route: 048
  8. RANITIDINE HYDROCHLORIDE [Concomitant]
     Dosage: 150 MG, UNK
     Route: 048
  9. ASCORBIC ACID [Concomitant]
     Dosage: 500 MG, UNK
     Route: 048
  10. FLAX SEED OIL [Concomitant]
     Dosage: 1000 MG, UNK
     Route: 048
  11. LOVAZA [Concomitant]
     Dosage: 1200 MG, UNK
     Route: 048
  12. ERGOCALCIFEROL [Concomitant]
     Dosage: 1000 IU/KG, UNK
     Route: 048
  13. CALCIUM CARBONATE/VITAMIN D [Concomitant]
     Dosage: 600 MG, UNK
     Route: 048

REACTIONS (1)
  - UPPER RESPIRATORY TRACT INFECTION [None]
